FAERS Safety Report 8401407-8 (Version None)
Quarter: 2012Q2

REPORT INFORMATION
  Report Type: 
  Country: None (occurrence: None)
  Receive Date: 20120601
  Receipt Date: 20120529
  Transmission Date: 20120825
  Serious: Yes (Other)
  Sender: FDA-Public Use
  Company Number: PHHY2011JP109565

PATIENT
  Sex: Male
  Weight: 60 kg

DRUGS (1)
  1. ZOMETA [Suspect]
     Indication: METASTASES TO BONE
     Dosage: 04 MG, PER ADMINISTRATION
     Route: 041
     Dates: start: 20100525

REACTIONS (10)
  - GINGIVAL SWELLING [None]
  - EXPOSED BONE IN JAW [None]
  - IMPAIRED HEALING [None]
  - GINGIVAL ERYTHEMA [None]
  - FISTULA [None]
  - OSTEONECROSIS OF JAW [None]
  - LYMPH NODE PAIN [None]
  - PAIN IN JAW [None]
  - LYMPHADENOPATHY [None]
  - GINGIVAL INFECTION [None]
